FAERS Safety Report 24632335 (Version 1)
Quarter: 2024Q4

REPORT INFORMATION
  Report Type: Spontaneous
  Country: US (occurrence: US)
  Receive Date: 20241118
  Receipt Date: 20241118
  Transmission Date: 20250114
  Serious: No
  Sender: MYLAN
  Company Number: US-MYLANLABS-2024M1100642

PATIENT
  Age: 59 Year
  Sex: Female
  Weight: 65.77 kg

DRUGS (1)
  1. WIXELA INHUB [Suspect]
     Active Substance: FLUTICASONE PROPIONATE\SALMETEROL XINAFOATE
     Indication: Asthma
     Dosage: 250/50 MICROGRAM, BID (MORNING AND NIGHT)
     Route: 055
     Dates: start: 202410, end: 20241030

REACTIONS (2)
  - Oral discomfort [Recovered/Resolved]
  - Glossodynia [Recovered/Resolved]

NARRATIVE: CASE EVENT DATE: 20241001
